FAERS Safety Report 4983733-8 (Version None)
Quarter: 2006Q2

REPORT INFORMATION
  Report Type: 
  Country: None (occurrence: None)
  Receive Date: 20060425
  Receipt Date: 20060425
  Transmission Date: 20061013
  Serious: Yes (Hospitalization)
  Sender: FDA-Public Use
  Company Number: None

PATIENT
  Sex: Male
  Weight: 81.8 kg

DRUGS (8)
  1. IRINOTECAN HCL [Suspect]
     Indication: ANAPLASTIC ASTROCYTOMA
     Dosage: 220 MG IV (DAY 1, 8, 22 AND 29)
     Route: 042
     Dates: start: 20060113
  2. IRINOTECAN HCL [Suspect]
     Indication: ANAPLASTIC ASTROCYTOMA
     Dosage: 220 MG IV (DAY 1, 8, 22 AND 29)
     Route: 042
     Dates: start: 20060120
  3. IRINOTECAN HCL [Suspect]
     Indication: ANAPLASTIC ASTROCYTOMA
     Dosage: 220 MG IV (DAY 1, 8, 22 AND 29)
     Route: 042
     Dates: start: 20060210
  4. IRINOTECAN HCL [Suspect]
     Indication: ANAPLASTIC ASTROCYTOMA
     Dosage: 220 MG IV (DAY 1, 8, 22 AND 29)
     Route: 042
     Dates: start: 20060223
  5. AVASTIN [Suspect]
     Indication: ANAPLASTIC ASTROCYTOMA
     Dosage: 1139 MG IV (DAY 1, 8, 22 AND 29)
     Route: 042
     Dates: start: 20060113, end: 20060203
  6. DEPAKOTE [Concomitant]
  7. DECADRON [Concomitant]
  8. TYLENOL EXTRA STR [Concomitant]

REACTIONS (1)
  - PULMONARY EMBOLISM [None]
